FAERS Safety Report 23225149 (Version 1)
Quarter: 2023Q4

REPORT INFORMATION
  Report Type: Spontaneous
  Country: PT (occurrence: PT)
  Receive Date: 20231124
  Receipt Date: 20231124
  Transmission Date: 20240110
  Serious: Yes (Other)
  Sender: FDA-Public Use
  Company Number: None

PATIENT
  Age: 2 Year
  Sex: Male
  Weight: 11.8 kg

DRUGS (3)
  1. SINGULAIR [Suspect]
     Active Substance: MONTELUKAST SODIUM
     Indication: Asthma
     Dosage: 4 MILLIGRAM, QD
     Route: 048
     Dates: start: 20231002, end: 20231016
  2. VENTILAN [SALBUTAMOL] [Concomitant]
     Indication: Asthma
     Dosage: UNK
  3. FLIXOTAIDE [FLUTICASONE] [Concomitant]
     Indication: Asthma
     Dosage: UNK
     Dates: start: 202302

REACTIONS (3)
  - Abdominal pain [Recovering/Resolving]
  - Sleep terror [Recovered/Resolved]
  - Diarrhoea [Recovering/Resolving]

NARRATIVE: CASE EVENT DATE: 20231004
